FAERS Safety Report 13440372 (Version 1)
Quarter: 2017Q2

REPORT INFORMATION
  Report Type: Spontaneous
  Country: US (occurrence: US)
  Receive Date: 20170413
  Receipt Date: 20170413
  Transmission Date: 20170830
  Serious: No
  Sender: FDA-Public Use
  Company Number: US-B.I. PHARMACEUTICALS,INC./RIDGEFIELD-2017-BI-020731

PATIENT
  Sex: Female

DRUGS (3)
  1. PRADAXA [Suspect]
     Active Substance: DABIGATRAN ETEXILATE MESYLATE
     Indication: ARTERIAL FIBROSIS
     Dosage: FORM STRENGTH: 75 MG; FORMULATION: CAPSULE? ADMINISTRATION CORRECT? NR(NOT REPORTED) ?ACTION(S) TAKE
     Route: 048
     Dates: start: 20170330
  2. PRADAXA [Suspect]
     Active Substance: DABIGATRAN ETEXILATE MESYLATE
     Dosage: FORM STRENGTH: 150MG; FORMULATION: CAPSULE? ADMINISTRATION CORRECT? NR(NOT REPORTED) ?ACTION(S) TAKE
     Route: 048
     Dates: start: 201606, end: 20170330
  3. MULTAQ [Concomitant]
     Active Substance: DRONEDARONE
     Indication: ARTERIAL FIBROSIS
     Route: 065

REACTIONS (3)
  - Spondylitis [Unknown]
  - Iron deficiency [Unknown]
  - Migraine [Unknown]
